FAERS Safety Report 26090393 (Version 2)
Quarter: 2025Q4

REPORT INFORMATION
  Report Type: Spontaneous
  Country: US (occurrence: None)
  Receive Date: 20251126
  Receipt Date: 20251201
  Transmission Date: 20260117
  Serious: No
  Sender: Alvotech
  Company Number: US-ALVOTECHPMS-2025-ALVOTECHPMS-005468

PATIENT
  Age: 54 Year
  Sex: Female

DRUGS (9)
  1. ADALIMUMAB [Suspect]
     Active Substance: ADALIMUMAB
     Indication: Crohn^s disease
     Dosage: 40/0.4 MG/ML
     Route: 058
     Dates: start: 2024
  2. PANTOPRAZOLE [Concomitant]
     Active Substance: PANTOPRAZOLE
     Indication: Antacid therapy
  3. QUETIAPINE FUMARATE [Concomitant]
     Active Substance: QUETIAPINE FUMARATE
     Indication: Bipolar disorder
  4. CELECOXIB [Concomitant]
     Active Substance: CELECOXIB
     Indication: Bipolar disorder
  5. VALACYCLOVIR HYDROCHLORIDE [Concomitant]
     Active Substance: VALACYCLOVIR HYDROCHLORIDE
     Indication: Herpes simplex
  6. LORAZEPAM [Concomitant]
     Active Substance: LORAZEPAM
  7. OXYBUTYNIN [Concomitant]
     Active Substance: OXYBUTYNIN
  8. ESTRADIOL\NORETHINDRONE ACETATE [Concomitant]
     Active Substance: ESTRADIOL\NORETHINDRONE ACETATE
  9. SIMLANDI [Suspect]
     Active Substance: ADALIMUMAB-RYVK
     Indication: Product used for unknown indication
     Dosage: 40/0.4 MG/ML
     Route: 058

REACTIONS (5)
  - Device malfunction [Unknown]
  - Device defective [Unknown]
  - Panic reaction [Unknown]
  - Product dose omission issue [Unknown]
  - Abdominal discomfort [Unknown]
